FAERS Safety Report 13318430 (Version 1)
Quarter: 2017Q1

REPORT INFORMATION
  Report Type: Other
  Country: IT (occurrence: IT)
  Receive Date: 20170310
  Receipt Date: 20170310
  Transmission Date: 20170428
  Serious: Yes (Hospitalization, Other)
  Sender: FDA-Public Use
  Company Number: IT-LUPIN PHARMACEUTICALS INC.-2017-00975

PATIENT
  Age: 3 Year
  Sex: Male

DRUGS (2)
  1. LEVETIRACETAM. [Suspect]
     Active Substance: LEVETIRACETAM
     Indication: EPILEPSY
     Dosage: 450 MG, QD
     Route: 048
  2. GASTROTUSS [Interacting]
     Active Substance: DEXPANTHENOL
     Indication: PRODUCT USED FOR UNKNOWN INDICATION
     Dosage: 2 APPLICATION , QD
     Route: 048
     Dates: start: 20170202, end: 20170209

REACTIONS (3)
  - Seizure [Recovering/Resolving]
  - Drug interaction [Unknown]
  - Incorrect product formulation administered [Unknown]

NARRATIVE: CASE EVENT DATE: 20170209
